FAERS Safety Report 22015545 (Version 3)
Quarter: 2023Q1

REPORT INFORMATION
  Report Type: Spontaneous
  Country: IT (occurrence: IT)
  Receive Date: 20230221
  Receipt Date: 20230309
  Transmission Date: 20230418
  Serious: Yes (Congenital Anomaly)
  Sender: FDA-Public Use
  Company Number: IT-SA-SAC20230220001293

PATIENT
  Sex: Male

DRUGS (1)
  1. AUBAGIO [Suspect]
     Active Substance: TERIFLUNOMIDE
     Indication: Multiple sclerosis
     Dosage: 14 MG, QD
     Route: 064

REACTIONS (3)
  - Spina bifida occulta [Recovered/Resolved]
  - Exposure via father [Recovered/Resolved]
  - Developmental delay [Recovered/Resolved with Sequelae]

NARRATIVE: CASE EVENT DATE: 20210929
